FAERS Safety Report 24292600 (Version 4)
Quarter: 2025Q3

REPORT INFORMATION
  Report Type: Spontaneous
  Country: US (occurrence: US)
  Receive Date: 20240906
  Receipt Date: 20250802
  Transmission Date: 20251020
  Serious: Yes (Other)
  Sender: ALEXION PHARMACEUTICALS
  Company Number: 2024A199929

PATIENT
  Sex: Female
  Weight: 87.1 kg

DRUGS (5)
  1. FASLODEX [Suspect]
     Active Substance: FULVESTRANT
     Dosage: UNK UNK, QMONTH
     Dates: start: 20230920
  2. PALBOCICLIB [Suspect]
     Active Substance: PALBOCICLIB
     Dosage: 100 MILLIGRAM, QD
     Dates: start: 20230920
  3. PALBOCICLIB [Suspect]
     Active Substance: PALBOCICLIB
  4. PALBOCICLIB [Suspect]
     Active Substance: PALBOCICLIB
  5. PALBOCICLIB [Suspect]
     Active Substance: PALBOCICLIB

REACTIONS (7)
  - Neutropenia [Recovering/Resolving]
  - Arthralgia [Unknown]
  - Anaemia [Recovering/Resolving]
  - Dizziness [Recovered/Resolved]
  - Fatigue [Recovering/Resolving]
  - White blood cell count decreased [Unknown]
  - Vomiting [Recovered/Resolved]
